FAERS Safety Report 16709440 (Version 2)
Quarter: 2019Q4

REPORT INFORMATION
  Report Type: Spontaneous
  Country: US (occurrence: US)
  Receive Date: 20190816
  Receipt Date: 20191016
  Transmission Date: 20200122
  Serious: Yes (Other)
  Sender: FDA-Public Use
  Company Number: US-BEH-2019105630

PATIENT
  Sex: Female

DRUGS (2)
  1. HIZENTRA [Suspect]
     Active Substance: HUMAN IMMUNOGLOBULIN G
     Dosage: 8 GRAM, QW
     Route: 058
     Dates: start: 20190523, end: 2019
  2. HIZENTRA [Suspect]
     Active Substance: HUMAN IMMUNOGLOBULIN G
     Indication: HYPOGAMMAGLOBULINAEMIA
     Dosage: 8 GRAM, QW
     Route: 058
     Dates: start: 20190423

REACTIONS (5)
  - No adverse event [Unknown]
  - Abdominal distension [Unknown]
  - Swelling face [Unknown]
  - Therapy cessation [Unknown]
  - Weight fluctuation [Unknown]
